FAERS Safety Report 14663793 (Version 1)
Quarter: 2018Q1

REPORT INFORMATION
  Report Type: Spontaneous
  Country: US (occurrence: US)
  Receive Date: 20180321
  Receipt Date: 20180321
  Transmission Date: 20180509
  Serious: No
  Sender: FDA-Public Use
  Company Number: US-UNITED THERAPEUTICS-UNT-2018-002254

PATIENT
  Age: 23 Year
  Sex: Female

DRUGS (3)
  1. IRINOTECAN [Concomitant]
     Active Substance: IRINOTECAN
     Indication: NEUROBLASTOMA
     Dosage: UNK
     Route: 065
     Dates: start: 20180109, end: 20180113
  2. TEMODAR [Concomitant]
     Active Substance: TEMOZOLOMIDE
     Indication: NEUROBLASTOMA
     Dosage: UNK
     Route: 065
     Dates: start: 20180109, end: 20180113
  3. UNITUXIN [Suspect]
     Active Substance: DINUTUXIMAB
     Indication: NEUROBLASTOMA
     Dosage: 35 MG, QD
     Route: 041
     Dates: start: 20180110

REACTIONS (3)
  - Hypotension [Recovered/Resolved]
  - Neuroblastoma recurrent [Unknown]
  - Product use in unapproved indication [Unknown]

NARRATIVE: CASE EVENT DATE: 20180110
